FAERS Safety Report 7808832-4 (Version None)
Quarter: 2011Q4

REPORT INFORMATION
  Report Type: 
  Country: None (occurrence: None)
  Receive Date: 20111012
  Receipt Date: 20111005
  Transmission Date: 20120403
  Serious: Yes (Hospitalization, Other)
  Sender: FDA-Public Use
  Company Number: PHHY2011JP89022

PATIENT
  Sex: Female

DRUGS (15)
  1. AFINITOR [Suspect]
     Dosage: 5 MG, DAILY
     Route: 048
     Dates: start: 20100827, end: 20100929
  2. AFINITOR [Suspect]
     Dosage: 5 MG, DAILY
     Route: 048
     Dates: start: 20101111, end: 20101208
  3. SUNITINIB MALATE [Concomitant]
     Indication: METASTATIC RENAL CELL CARCINOMA
     Dosage: UNK UKN, UNK
     Dates: start: 20100107, end: 20100721
  4. KETOPROFEN [Concomitant]
     Indication: METASTATIC RENAL CELL CARCINOMA
     Dosage: 3 DF, UNK
     Dates: start: 20100806, end: 20101008
  5. ADONA [Concomitant]
     Indication: METASTATIC RENAL CELL CARCINOMA
     Dosage: 90 MG, UNK
     Route: 048
     Dates: start: 20100902, end: 20100908
  6. MS REISHIPPU [Concomitant]
     Indication: METASTATIC RENAL CELL CARCINOMA
     Dosage: UNK UKN, UNK
     Dates: start: 20101009
  7. FUROSEMIDE [Concomitant]
     Indication: METASTATIC RENAL CELL CARCINOMA
     Dosage: 20 MEQ/KG, UNK
     Route: 048
     Dates: start: 20101006
  8. ADALAT [Concomitant]
     Indication: METASTATIC RENAL CELL CARCINOMA
     Dosage: 20 MG, UNK
     Route: 048
     Dates: start: 20101019
  9. TRANEXAMIC ACID [Concomitant]
     Indication: METASTATIC RENAL CELL CARCINOMA
     Dosage: 750 MG, UNK
     Route: 048
     Dates: start: 20100902, end: 20100908
  10. LOXONIN [Concomitant]
     Indication: METASTATIC RENAL CELL CARCINOMA
     Dosage: 180 MG, UNK
     Route: 048
     Dates: start: 20100806
  11. AFINITOR [Suspect]
     Dosage: 5 MG, DAILY
     Route: 048
     Dates: start: 20101006, end: 20101030
  12. AFINITOR [Suspect]
     Indication: METASTATIC RENAL CELL CARCINOMA
     Dosage: 5 MG, DAILY
     Route: 048
     Dates: start: 20100806, end: 20100811
  13. DIOVAN [Concomitant]
     Indication: METASTATIC RENAL CELL CARCINOMA
     Dosage: 80 MG, UNK
     Route: 048
     Dates: start: 20101016
  14. HUMALOG [Concomitant]
     Dosage: 10 IU, UNK
     Route: 058
     Dates: start: 20100806
  15. TORISEL [Concomitant]
     Indication: METASTATIC RENAL CELL CARCINOMA
     Dosage: UNK UKN, UNK
     Dates: start: 20110119

REACTIONS (5)
  - GAMMA-GLUTAMYLTRANSFERASE INCREASED [None]
  - NEOPLASM MALIGNANT [None]
  - METASTASES TO LUNG [None]
  - RENAL HAEMORRHAGE [None]
  - NEOPLASM PROGRESSION [None]
